FAERS Safety Report 25278271 (Version 1)
Quarter: 2025Q2

REPORT INFORMATION
  Report Type: Spontaneous
  Country: US (occurrence: US)
  Receive Date: 20250507
  Receipt Date: 20250507
  Transmission Date: 20250717
  Serious: No
  Sender: GLAND PHARMA LTD
  Company Number: US-GLANDPHARMA-US-2025GLNSPO01112

PATIENT
  Sex: Male

DRUGS (1)
  1. BROMFENAC OPHTHALMIC SOLUTION 0.09% [Suspect]
     Active Substance: BROMFENAC SODIUM
     Indication: Cataract operation
     Dates: start: 2025

REACTIONS (3)
  - Product dose omission issue [Unknown]
  - Product use issue [Unknown]
  - Product packaging quantity issue [Unknown]

NARRATIVE: CASE EVENT DATE: 20250101
